FAERS Safety Report 16087624 (Version 4)
Quarter: 2019Q2

REPORT INFORMATION
  Report Type: Spontaneous
  Country: US (occurrence: US)
  Receive Date: 20190319
  Receipt Date: 20190425
  Transmission Date: 20190711
  Serious: No
  Sender: FDA-Public Use
  Company Number: US-LUNDBECK-DKLU2062120

PATIENT
  Sex: Male

DRUGS (2)
  1. NORTHERA [Suspect]
     Active Substance: DROXIDOPA
     Indication: AUTONOMIC NEUROPATHY
     Route: 048
     Dates: start: 20190220
  2. NORTHERA [Suspect]
     Active Substance: DROXIDOPA
     Indication: ORTHOSTATIC HYPOTENSION

REACTIONS (4)
  - Product dose omission [Unknown]
  - Memory impairment [Unknown]
  - Photopsia [Unknown]
  - Headache [Unknown]

NARRATIVE: CASE EVENT DATE: 2019
